FAERS Safety Report 8909512 (Version 5)
Quarter: 2013Q2

REPORT INFORMATION
  Report Type: Spontaneous
  Country: BE (occurrence: BE)
  Receive Date: 20121115
  Receipt Date: 20130610
  Transmission Date: 20140414
  Serious: Yes (Life-Threatening, Hospitalization)
  Sender: FDA-Public Use
  Company Number: BE-SANOFI-AVENTIS-2012SA081543

PATIENT
  Age: 67 Year
  Sex: Female

DRUGS (43)
  1. LASIX [Suspect]
     Indication: PRODUCT USED FOR UNKNOWN INDICATION
     Route: 042
  2. ACICLOVIR [Suspect]
     Indication: PRODUCT USED FOR UNKNOWN INDICATION
     Route: 048
     Dates: start: 20121105
  3. SEROQUEL [Suspect]
     Indication: PRODUCT USED FOR UNKNOWN INDICATION
     Route: 065
  4. SAR245409 [Suspect]
     Indication: LYMPHOMA
     Route: 048
     Dates: start: 20121025, end: 20121028
  5. INSULIN [Concomitant]
     Dosage: DOSE UNIT: IU
     Route: 042
     Dates: start: 20121029, end: 20121113
  6. CORDARONE [Concomitant]
     Route: 048
     Dates: start: 20121122, end: 20121129
  7. CORDARONE [Concomitant]
     Route: 042
     Dates: start: 20121029, end: 20121030
  8. LASIX [Concomitant]
     Route: 048
     Dates: start: 20121122, end: 20121129
  9. LASIX [Concomitant]
     Route: 042
     Dates: start: 20121029, end: 20121029
  10. MIDAZOLAM [Concomitant]
     Dosage: DOSE UNIT: MG
     Route: 042
     Dates: start: 20121029, end: 20121105
  11. AUGMENTIN [Concomitant]
     Route: 042
     Dates: start: 20121029, end: 20121104
  12. AUGMENTIN [Concomitant]
     Route: 048
     Dates: start: 20121124
  13. LEVOPHED [Concomitant]
     Dosage: DOSE UNIT: ML
     Route: 042
     Dates: start: 20121030, end: 20121104
  14. ADRENALINE [Concomitant]
     Route: 042
     Dates: start: 20121030, end: 20121101
  15. SOLU-CORTEF [Concomitant]
     Route: 042
     Dates: start: 20121030, end: 20121030
  16. SOLU-CORTEF [Concomitant]
     Route: 042
     Dates: start: 20121031, end: 20121031
  17. ZANTAC [Concomitant]
     Route: 042
     Dates: start: 20121030, end: 20121102
  18. MORPHINE [Concomitant]
     Dosage: DOSE UNIT: MG
     Route: 042
     Dates: start: 20121031, end: 20121105
  19. MORPHINE [Concomitant]
     Dosage: DOSE UNIT: MG
     Route: 048
     Dates: start: 20121123, end: 20121126
  20. LANOXIN [Concomitant]
     Route: 042
     Dates: start: 20121031, end: 20121104
  21. HEPARINE [Concomitant]
     Dosage: DOSE UNIT: IU
     Route: 042
     Dates: start: 20121031, end: 20121107
  22. OMEPRAZOLE [Concomitant]
     Route: 048
     Dates: start: 20121102
  23. OMEPRAZOLE [Concomitant]
     Route: 048
     Dates: start: 20121121
  24. PRIMPERAN [Concomitant]
     Route: 042
     Dates: start: 20121103, end: 20121111
  25. CEFEPIME [Concomitant]
     Route: 042
     Dates: start: 20121104, end: 20121105
  26. SOLU-MEDROL [Concomitant]
     Route: 042
     Dates: start: 20121105, end: 20121105
  27. ACICLOVIR [Concomitant]
     Route: 048
     Dates: start: 20121105
  28. LANOXIN [Concomitant]
     Route: 048
     Dates: start: 20121104, end: 20121104
  29. CEFEPIME [Concomitant]
     Route: 042
     Dates: start: 20121105, end: 20121105
  30. PARACETAMOL [Concomitant]
     Dates: start: 20121106, end: 20121106
  31. STILNOCT [Concomitant]
     Route: 048
     Dates: start: 20121106, end: 20121115
  32. MAXIPIME [Concomitant]
     Route: 042
     Dates: start: 20121106, end: 20121110
  33. MAXIPIME [Concomitant]
     Route: 042
     Dates: start: 20121111, end: 20121111
  34. MIDAZOLAM [Concomitant]
     Route: 042
     Dates: start: 20121102, end: 20121102
  35. CLEXANE [Concomitant]
     Route: 058
     Dates: start: 20121107, end: 20121111
  36. CLEXANE [Concomitant]
     Route: 058
     Dates: start: 20121112
  37. REMERGON [Concomitant]
     Route: 048
     Dates: start: 20121112
  38. KALEORID [Concomitant]
     Dosage: DOSE UNIT: G
     Route: 048
     Dates: start: 20121120, end: 20121129
  39. SEROQUEL [Concomitant]
     Route: 048
     Dates: start: 20121116
  40. LYSOMUCIL [Concomitant]
     Route: 048
     Dates: start: 20121119, end: 20121126
  41. DUOVENT [Concomitant]
     Dosage: DOSE UNIT: SPRAY
     Route: 055
     Dates: start: 20121119, end: 20121127
  42. MEDROL [Concomitant]
     Route: 048
     Dates: start: 20121122, end: 20121225
  43. VEPESID [Concomitant]
     Route: 048
     Dates: start: 20121126

REACTIONS (11)
  - Respiratory disorder [Unknown]
  - Intentional overdose [Unknown]
  - Hepatic enzyme increased [Recovered/Resolved]
  - Aspartate aminotransferase increased [Recovering/Resolving]
  - Alanine aminotransferase increased [Recovered/Resolved]
  - Renal failure acute [Unknown]
  - Dehydration [Unknown]
  - Confusional state [Unknown]
  - Agitation [Unknown]
  - Hyperglycaemia [Recovering/Resolving]
  - Atrial fibrillation [Recovered/Resolved]
